FAERS Safety Report 24645765 (Version 8)
Quarter: 2025Q4

REPORT INFORMATION
  Report Type: Report from Study
  Country: US (occurrence: None)
  Receive Date: 20241121
  Receipt Date: 20251222
  Transmission Date: 20260117
  Serious: Yes (Hospitalization, Other)
  Sender: UCB
  Company Number: US-UCBSA-2024059986

PATIENT
  Age: 24 Year
  Weight: 85 kg

DRUGS (4)
  1. FENFLURAMINE HYDROCHLORIDE [Suspect]
     Active Substance: FENFLURAMINE HYDROCHLORIDE
     Indication: Lennox-Gastaut syndrome
     Dosage: 22.2 MILLIGRAM, ONCE DAILY (QD)
  2. FENFLURAMINE HYDROCHLORIDE [Suspect]
     Active Substance: FENFLURAMINE HYDROCHLORIDE
     Indication: Seizure
     Dosage: 5 MILLILITER, 2X/DAY (BID)
  3. FENFLURAMINE HYDROCHLORIDE [Suspect]
     Active Substance: FENFLURAMINE HYDROCHLORIDE
     Dosage: 0.26 MILLIGRAM/KILOGRAM/DAY TOTALLY 22 MILLIGRAM PER DAY
  4. FENFLURAMINE HYDROCHLORIDE [Suspect]
     Active Substance: FENFLURAMINE HYDROCHLORIDE
     Dosage: 5 MILLILITER, 2X/DAY (BID)

REACTIONS (8)
  - Tricuspid valve incompetence [Not Recovered/Not Resolved]
  - Pneumonia [Recovered/Resolved]
  - Pericardial effusion [Not Recovered/Not Resolved]
  - Left-to-right cardiac shunt [Not Recovered/Not Resolved]
  - Behaviour disorder [Not Recovered/Not Resolved]
  - Anxiety [Unknown]
  - Agitation [Unknown]
  - Echocardiogram abnormal [Not Recovered/Not Resolved]
